FAERS Safety Report 19661903 (Version 1)
Quarter: 2021Q3

REPORT INFORMATION
  Report Type: Spontaneous
  Country: CN (occurrence: CN)
  Receive Date: 20210805
  Receipt Date: 20210805
  Transmission Date: 20211014
  Serious: Yes (Hospitalization)
  Sender: FDA-Public Use
  Company Number: CN-BAXTER-2021BAX023451

PATIENT
  Age: 48 Year
  Sex: Female

DRUGS (4)
  1. ENDOXAN [Suspect]
     Active Substance: CYCLOPHOSPHAMIDE
     Indication: BREAST CANCER FEMALE
     Dosage: AC?T REGIMEN CHEMOTHERAPY, DAY 1
     Route: 041
     Dates: start: 20210711, end: 20210711
  2. 5% GLUCOSE  INJECTION [Suspect]
     Active Substance: DEXTROSE
     Indication: MEDICATION DILUTION
     Dosage: WITH PIRARUBICIN HYDROCHLORIDE, DAY 1
     Route: 041
     Dates: start: 20210711, end: 20210711
  3. PIRARUBICIN HYDROCHLORIDE [Suspect]
     Active Substance: PIRARUBICIN HYDROCHLORIDE
     Indication: BREAST CANCER FEMALE
     Dosage: AC?T REGIMEN CHEMOTHERAPY, DAY 1
     Route: 041
     Dates: start: 20210711, end: 20210711
  4. 0.9% SODIUM CHLORIDE INJECTION [Suspect]
     Active Substance: SODIUM CHLORIDE
     Indication: MEDICATION DILUTION
     Dosage: WITH ENDOXAN, DAY 1
     Route: 041
     Dates: start: 20210711, end: 20210711

REACTIONS (1)
  - Myelosuppression [Recovered/Resolved]

NARRATIVE: CASE EVENT DATE: 20210719
